FAERS Safety Report 9587515 (Version 2)
Quarter: 2013Q4

REPORT INFORMATION
  Report Type: Report from Study
  Country: CO (occurrence: CO)
  Receive Date: 20131003
  Receipt Date: 20131108
  Transmission Date: 20140711
  Serious: Yes (Hospitalization)
  Sender: FDA-Public Use
  Company Number: CO-ROCHE-1284515

PATIENT
  Age: 12 Year
  Sex: Male
  Weight: 51 kg

DRUGS (2)
  1. XOLAIR [Suspect]
     Indication: ASTHMA
     Route: 058
     Dates: start: 201303
  2. MONTELUKAST [Concomitant]
     Route: 065

REACTIONS (1)
  - Asthmatic crisis [Recovered/Resolved]
